FAERS Safety Report 8896424 (Version 1)
Quarter: 2012Q4

REPORT INFORMATION
  Report Type: Spontaneous
  Country: US (occurrence: None)
  Receive Date: 20121107
  Receipt Date: 20121107
  Transmission Date: 20130627
  Serious: No
  Sender: FDA-Public Use
  Company Number: None

PATIENT
  Sex: Male

DRUGS (1)
  1. AZELASTINE [Suspect]
     Indication: ALLERGIC RHINITIS
     Dates: start: 2011

REACTIONS (2)
  - Drug ineffective [None]
  - Product substitution issue [None]
